FAERS Safety Report 5014754-7 (Version None)
Quarter: 2006Q2

REPORT INFORMATION
  Report Type: 
  Country: None (occurrence: None)
  Receive Date: 20060531
  Receipt Date: 20060519
  Transmission Date: 20061013
  Serious: Yes (Life-Threatening, Hospitalization, Other)
  Sender: FDA-Public Use
  Company Number: CH-BRISTOL-MYERS SQUIBB COMPANY-13382585

PATIENT
  Age: 16 Year
  Sex: Female

DRUGS (1)
  1. LITALIR [Suspect]
     Indication: SICKLE CELL ANAEMIA
     Route: 048
     Dates: start: 20060518, end: 20060519

REACTIONS (5)
  - FATIGUE [None]
  - LETHARGY [None]
  - OVERDOSE [None]
  - SUICIDE ATTEMPT [None]
  - VOMITING [None]
